FAERS Safety Report 5315444-3 (Version None)
Quarter: 2007Q2

REPORT INFORMATION
  Report Type: 
  Country: None (occurrence: None)
  Receive Date: 20070503
  Receipt Date: 20070425
  Transmission Date: 20071010
  Serious: Yes (Other)
  Sender: FDA-Public Use
  Company Number: CA-JNJFOC-20061201985

PATIENT
  Sex: Female

DRUGS (1)
  1. DURAGESIC-100 [Suspect]
     Indication: ANALGESIC EFFECT
     Route: 062

REACTIONS (5)
  - ASTHENIA [None]
  - DEHYDRATION [None]
  - DISORIENTATION [None]
  - EATING DISORDER [None]
  - EMOTIONAL DISTRESS [None]
